FAERS Safety Report 9679253 (Version 1)
Quarter: 2013Q4

REPORT INFORMATION
  Report Type: Report from Study
  Country: CA (occurrence: CA)
  Receive Date: 20131109
  Receipt Date: 20131109
  Transmission Date: 20140711
  Serious: Yes (Death)
  Sender: FDA-Public Use
  Company Number: CA-ROCHE-1299902

PATIENT
  Age: 75 Year
  Sex: 0

DRUGS (8)
  1. AVASTIN [Suspect]
     Indication: COLORECTAL CANCER METASTATIC
     Dosage: STOPPED AFTER 5 CYLCLES
     Route: 065
     Dates: start: 20121106, end: 20130108
  2. AVASTIN [Suspect]
     Dosage: STOPPED AFTER 8 CYCLES
     Route: 065
     Dates: start: 20130212, end: 20130604
  3. FOLINIC ACID [Suspect]
     Indication: COLORECTAL CANCER METASTATIC
     Dosage: STOPPED AFTER 5 CYLCLES
     Route: 065
     Dates: start: 20121106, end: 20130108
  4. FOLINIC ACID [Suspect]
     Dosage: STOPPED AFTER 8 CYCLES
     Route: 065
     Dates: start: 20130212, end: 20130604
  5. FLUOROURACIL [Suspect]
     Indication: COLORECTAL CANCER METASTATIC
     Dosage: STOPPED AFTER 5 CYLCLES
     Route: 065
     Dates: start: 20121106, end: 20130108
  6. FLUOROURACIL [Suspect]
     Dosage: STOPPED AFTER 8 CYCLES
     Route: 065
     Dates: start: 20130212, end: 20130604
  7. OXALIPLATIN [Suspect]
     Indication: COLORECTAL CANCER METASTATIC
     Dosage: STOPPED AFTER 5 CYLCLES
     Route: 065
     Dates: start: 20121106, end: 20130108
  8. IRINOTECAN [Suspect]
     Indication: COLORECTAL CANCER METASTATIC
     Dosage: STOPPED AFTER 8 CYCLES
     Route: 065
     Dates: start: 20130212, end: 20130604

REACTIONS (2)
  - Death [Fatal]
  - Disease progression [Unknown]
